FAERS Safety Report 23636750 (Version 1)
Quarter: 2024Q1

REPORT INFORMATION
  Report Type: Spontaneous
  Country: JP (occurrence: JP)
  Receive Date: 20240315
  Receipt Date: 20240315
  Transmission Date: 20240409
  Serious: Yes (Hospitalization)
  Sender: FDA-Public Use
  Company Number: JP-DSJP-DSJ-2024-111410

PATIENT
  Age: 83 Year
  Sex: Male

DRUGS (2)
  1. EDOXABAN TOSYLATE [Suspect]
     Active Substance: EDOXABAN TOSYLATE
     Indication: Atrial fibrillation
     Dosage: UNK
     Route: 048
  2. ASPIRIN [Concomitant]
     Active Substance: ASPIRIN
     Dosage: UNK
     Route: 048

REACTIONS (4)
  - Cerebral infarction [Unknown]
  - Carotid artery stenosis [Unknown]
  - Pharyngeal oedema [Recovering/Resolving]
  - Localised oedema [Recovering/Resolving]
